FAERS Safety Report 21917991 (Version 1)
Quarter: 2023Q1

REPORT INFORMATION
  Report Type: Spontaneous
  Country: US (occurrence: None)
  Receive Date: 20230127
  Receipt Date: 20230127
  Transmission Date: 20230417
  Serious: No
  Sender: FDA-Public Use
  Company Number: US-Ultragenyx Pharmaceutical Inc.-US-UGNX-22-00769

PATIENT
  Sex: Female
  Weight: 17.9 kg

DRUGS (3)
  1. DOJOLVI [Suspect]
     Active Substance: TRIHEPTANOIN
     Indication: Pyruvate carboxylase deficiency
     Route: 048
  2. LEVOCARNITINE [Concomitant]
     Active Substance: LEVOCARNITINE
     Indication: Product used for unknown indication
  3. VITAMINS [Concomitant]
     Active Substance: VITAMINS
     Indication: Product used for unknown indication

REACTIONS (2)
  - Respiratory syncytial virus infection [Recovered/Resolved]
  - Off label use [Unknown]
